FAERS Safety Report 4666460-6 (Version None)
Quarter: 2005Q2

REPORT INFORMATION
  Report Type: 
  Country: None (occurrence: None)
  Receive Date: 20050518
  Receipt Date: 20050505
  Transmission Date: 20051028
  Serious: Yes (Other)
  Sender: FDA-Public Use
  Company Number: 2005062912

PATIENT
  Age: 55 Year
  Sex: Female
  Weight: 77.1115 kg

DRUGS (11)
  1. CELEBREX [Suspect]
     Indication: OSTEOARTHRITIS
     Dosage: ORAL
     Route: 048
     Dates: start: 20040101, end: 20040101
  2. BEXTRA [Suspect]
     Indication: OSTEOARTHRITIS
     Dosage: 10 MG(10 MG, 1 IN 1 D), ORAL
     Route: 048
     Dates: start: 20050101
  3. CARISOPRODOL [Concomitant]
  4. MIDRID (DICHLORALPHENAZONE, ISOMETHEPINE, PARACETAMOL) [Concomitant]
  5. MIDRID  (DICHLORALPHENAZONE,  ISOMETHEPTENE, PARACETAMOL) [Concomitant]
  6. AXOTAL (OLD FORM) (BUTALBITAL, CAFFEINE, PARACETAMOL) [Concomitant]
  7. SALBUTAMOL (SALBUTAMOL) [Concomitant]
  8. MONTELUKAST SODIUM (MONTELUKAST SODIUM) [Concomitant]
  9. THEOPHYLLINE [Concomitant]
  10. FLUTICASONE PROPIONATE (FLUTICAOSNE PROPIOANTE) [Concomitant]
  11. SALMETEROL XINAFOATE (SALMETEROL XINAFOATE) [Concomitant]

REACTIONS (9)
  - ANGINA PECTORIS [None]
  - ASTHMA [None]
  - CARDIAC DISORDER [None]
  - CHEST PAIN [None]
  - DYSPNOEA [None]
  - FATIGUE [None]
  - GENERALISED ERYTHEMA [None]
  - MITRAL VALVE INCOMPETENCE [None]
  - TRICUSPID VALVE INCOMPETENCE [None]
